FAERS Safety Report 6006592-3 (Version None)
Quarter: 2008Q4

REPORT INFORMATION
  Report Type: 
  Country: None (occurrence: None)
  Receive Date: 20081217
  Receipt Date: 20081212
  Transmission Date: 20090506
  Serious: Yes (Hospitalization)
  Sender: FDA-Public Use
  Company Number: US-BRISTOL-MYERS SQUIBB COMPANY-14444202

PATIENT
  Sex: Female
  Weight: 4 kg

DRUGS (2)
  1. CHOLESTYRAMINE [Suspect]
     Indication: CONGENITAL ABSENCE OF BILE DUCTS
  2. PORTAGEN [Suspect]
     Indication: CONGENITAL ABSENCE OF BILE DUCTS
     Dosage: 1 DOSAGE FORM = 1000-1200ML.

REACTIONS (4)
  - DIARRHOEA [None]
  - HYPERCHLORAEMIA [None]
  - HYPERNATRAEMIA [None]
  - VOMITING [None]
